FAERS Safety Report 14349993 (Version 4)
Quarter: 2018Q1

REPORT INFORMATION
  Report Type: Report from Study
  Country: US (occurrence: US)
  Receive Date: 20180104
  Receipt Date: 20180327
  Transmission Date: 20180509
  Serious: Yes (Death, Hospitalization, Other)
  Sender: FDA-Public Use
  Company Number: US-JNJFOC-20180103439

PATIENT
  Age: 67 Year
  Sex: Male

DRUGS (16)
  1. SINGULAIR [Concomitant]
     Active Substance: MONTELUKAST SODIUM
  2. IMBRUVICA [Suspect]
     Active Substance: IBRUTINIB
     Indication: CHRONIC LYMPHOCYTIC LEUKAEMIA
     Route: 048
     Dates: start: 20171223
  3. BREO ELLIPTA [Concomitant]
     Active Substance: FLUTICASONE FUROATE\VILANTEROL TRIFENATATE
  4. CELEXA [Concomitant]
     Active Substance: CITALOPRAM HYDROBROMIDE
  5. GLUCOSAMINE [Concomitant]
     Active Substance: GLUCOSAMINE
  6. TAMSULOSIN HYDROCHLORIDE. [Concomitant]
     Active Substance: TAMSULOSIN HYDROCHLORIDE
  7. OXCARBAZEPINE. [Concomitant]
     Active Substance: OXCARBAZEPINE
  8. IMBRUVICA [Suspect]
     Active Substance: IBRUTINIB
     Indication: CHRONIC LYMPHOCYTIC LEUKAEMIA
     Route: 048
     Dates: start: 20180107, end: 20180124
  9. ALLEGRA [Concomitant]
     Active Substance: FEXOFENADINE HYDROCHLORIDE
  10. CRANBERRY. [Concomitant]
     Active Substance: CRANBERRY
  11. PROAIR HFA [Concomitant]
     Active Substance: ALBUTEROL SULFATE
  12. GABAPENTIN. [Concomitant]
     Active Substance: GABAPENTIN
  13. COREG [Concomitant]
     Active Substance: CARVEDILOL
  14. DOXYCYCLINE HYCLATE. [Concomitant]
     Active Substance: DOXYCYCLINE HYCLATE
  15. FISH OIL [Concomitant]
     Active Substance: FISH OIL
  16. MEDROL [Concomitant]
     Active Substance: METHYLPREDNISOLONE

REACTIONS (8)
  - Platelet count decreased [Unknown]
  - Fatigue [Unknown]
  - Neutropenia [Unknown]
  - Nausea [Unknown]
  - Death [Fatal]
  - Hypotension [Unknown]
  - Transient ischaemic attack [Unknown]
  - Confusional state [Unknown]

NARRATIVE: CASE EVENT DATE: 20171227
